FAERS Safety Report 5259882-6 (Version None)
Quarter: 2007Q1

REPORT INFORMATION
  Report Type: 
  Country: None (occurrence: None)
  Receive Date: 20070306
  Receipt Date: 20070220
  Transmission Date: 20070707
  Serious: Yes (Hospitalization)
  Sender: FDA-Public Use
  Company Number: S07-ITA-00977-01

PATIENT
  Age: 54 Year
  Sex: Male

DRUGS (3)
  1. ELOPRAM DROPS  (CITALOPRAM HYDROBROMIDE) [Suspect]
     Indication: ANXIETY
     Dosage: 15 DROPS QD PO
     Route: 048
     Dates: start: 20060526, end: 20061223
  2. ELOPRAM DROPS  (CITALOPRAM HYDROBROMIDE) [Suspect]
     Indication: DEPRESSION
     Dosage: 15 DROPS QD PO
     Route: 048
     Dates: start: 20060526, end: 20061223
  3. SPEKTRAMOX (AMOXICILLINE/CLAVULANIC ACID) [Concomitant]

REACTIONS (1)
  - HYPONATRAEMIC SYNDROME [None]
